FAERS Safety Report 5787489-0 (Version None)
Quarter: 2008Q2

REPORT INFORMATION
  Report Type: 
  Country: None (occurrence: None)
  Receive Date: 20080623
  Receipt Date: 20080623
  Transmission Date: 20081010
  Serious: No
  Sender: FDA-Public Use
  Company Number: None

PATIENT
  Age: 55 Year
  Sex: Male

DRUGS (1)
  1. METFORMIN HCL [Suspect]
     Indication: DIABETES MELLITUS
     Dosage: 500 MG TID PO
     Route: 048
     Dates: start: 20080207, end: 20080612

REACTIONS (4)
  - BLOOD LACTIC ACID INCREASED [None]
  - HYPOTENSION [None]
  - MUSCLE SPASMS [None]
  - RENAL FAILURE ACUTE [None]
